FAERS Safety Report 14965845 (Version 1)
Quarter: 2018Q2

REPORT INFORMATION
  Report Type: Spontaneous
  Country: ES (occurrence: ES)
  Receive Date: 20180602
  Receipt Date: 20180602
  Transmission Date: 20180711
  Serious: Yes (Other)
  Sender: FDA-Public Use
  Company Number: ES-AUROBINDO-AUR-APL-2018-029877

PATIENT
  Age: 76 Year
  Sex: Male

DRUGS (6)
  1. AZTREONAM. [Suspect]
     Active Substance: AZTREONAM
     Indication: PNEUMONIA
     Dosage: 2 GRAM, 3 TIMES A DAY,(2GR/8H )
     Route: 042
     Dates: start: 20170908, end: 20171010
  2. PANTOPRAZOLE [Concomitant]
     Active Substance: PANTOPRAZOLE
     Indication: PRODUCT USED FOR UNKNOWN INDICATION
     Dosage: 40 MILLIGRAM, ONCE A DAY,(40 MG DIA)
     Route: 042
     Dates: start: 20170903
  3. LINEZOLID. [Suspect]
     Active Substance: LINEZOLID
     Indication: PNEUMONIA
     Dosage: 600 MILLIGRAM, ONCE A DAY,(600 MG DIA)
     Route: 042
     Dates: start: 20170918, end: 20170925
  4. PARACETAMOL [Concomitant]
     Active Substance: ACETAMINOPHEN
     Indication: PRODUCT USED FOR UNKNOWN INDICATION
     Dosage: 1 GRAM, 3 TIMES A DAY,(1GR/8H)
     Route: 042
     Dates: start: 20170903
  5. LEVOFLOXACIN. [Suspect]
     Active Substance: LEVOFLOXACIN
     Indication: PRODUCT USED FOR UNKNOWN INDICATION
     Dosage: 500 MILLIGRAM, ONCE A DAY,(500 MG DIA)
     Route: 042
     Dates: start: 20170903, end: 20170925
  6. EUTIROX [Concomitant]
     Active Substance: LEVOTHYROXINE SODIUM
     Indication: PRODUCT USED FOR UNKNOWN INDICATION
     Dosage: 25 MICROGRAM, ONCE A DAY,(1  CP DIA)
     Route: 048
     Dates: start: 20010101

REACTIONS (1)
  - Hepatitis cholestatic [Recovered/Resolved]

NARRATIVE: CASE EVENT DATE: 20170928
